FAERS Safety Report 9030593 (Version 3)
Quarter: 2016Q1

REPORT INFORMATION
  Report Type: Spontaneous
  Country: FR (occurrence: FR)
  Receive Date: 20130123
  Receipt Date: 20160118
  Transmission Date: 20160526
  Serious: Yes (Hospitalization, Other)
  Sender: FDA-Public Use
  Company Number: FR-009507513-1301FRA007937

PATIENT
  Age: 44 Year
  Sex: Female

DRUGS (14)
  1. ISENTRESS [Suspect]
     Active Substance: RALTEGRAVIR POTASSIUM
     Indication: HIV INFECTION
     Dosage: 400 MG, BID
     Route: 048
     Dates: start: 20121109, end: 20121205
  2. FLUCONAZOLE. [Suspect]
     Active Substance: FLUCONAZOLE
     Indication: CRYPTOCOCCOSIS
     Dosage: 400 MG, QD
     Route: 048
     Dates: end: 20121219
  3. ANSATIPINE [Suspect]
     Active Substance: RIFABUTIN
     Dosage: 150 MG, QD
     Dates: start: 20130130, end: 20130531
  4. PYRIDOXINE [Concomitant]
     Active Substance: PYRIDOXINE
     Dosage: UNK
  5. TRUVADA [Suspect]
     Active Substance: EMTRICITABINE\TENOFOVIR DISOPROXIL FUMARATE
     Indication: HIV INFECTION
     Dosage: 1 DF, QD
     Route: 048
     Dates: start: 20121109, end: 20121219
  6. RIMIFON [Suspect]
     Active Substance: ISONIAZID
     Indication: DISSEMINATED TUBERCULOSIS
     Dosage: 200 MG, QD
     Route: 048
     Dates: end: 20121219
  7. ANSATIPINE [Suspect]
     Active Substance: RIFABUTIN
     Indication: DISSEMINATED TUBERCULOSIS
     Dosage: 450 MG, QD
     Route: 048
     Dates: end: 20121219
  8. THIAMINE. [Concomitant]
     Active Substance: THIAMINE
     Dosage: UNK
     Route: 048
  9. ISENTRESS [Suspect]
     Active Substance: RALTEGRAVIR POTASSIUM
     Dosage: 400 MG, BID
     Route: 048
     Dates: start: 20121207, end: 20121219
  10. INTELENCE [Concomitant]
     Active Substance: ETRAVIRINE
     Dosage: UNK
     Route: 048
     Dates: start: 20121205, end: 20121207
  11. LYRICA [Suspect]
     Active Substance: PREGABALIN
     Dosage: 50 MG, QD
     Route: 048
     Dates: end: 20121219
  12. TRUVADA [Suspect]
     Active Substance: EMTRICITABINE\TENOFOVIR DISOPROXIL FUMARATE
     Dosage: UNK
     Route: 048
     Dates: start: 20130130, end: 20130531
  13. WELLVONE [Suspect]
     Active Substance: ATOVAQUONE
     Dosage: 750 MG, BID
     Route: 048
     Dates: end: 20121219
  14. RIMIFON [Suspect]
     Active Substance: ISONIAZID
     Dosage: 300 MG, QD
     Dates: start: 20130130, end: 20130531

REACTIONS (7)
  - Vomiting [Recovered/Resolved]
  - Erythema [Recovered/Resolved]
  - Pruritus [Recovered/Resolved]
  - Drug reaction with eosinophilia and systemic symptoms [Recovered/Resolved]
  - Liver disorder [Recovered/Resolved]
  - Eosinophilia [Recovered/Resolved]
  - Agranulocytosis [Recovered/Resolved]

NARRATIVE: CASE EVENT DATE: 20121205
